FAERS Safety Report 23543537 (Version 2)
Quarter: 2024Q2

REPORT INFORMATION
  Report Type: Report from Study
  Country: CA (occurrence: None)
  Receive Date: 20240220
  Receipt Date: 20240524
  Transmission Date: 20240715
  Serious: Yes (Other)
  Sender: FDA-Public Use
  Company Number: CA-PFIZER INC-202400042547

PATIENT
  Age: 73 Year
  Sex: Female

DRUGS (14)
  1. METHOTREXATE [Suspect]
     Active Substance: METHOTREXATE
     Indication: Product used for unknown indication
  2. ORENCIA [Suspect]
     Active Substance: ABATACEPT
     Indication: Rheumatoid arthritis
     Dosage: CYCLIC
  3. ORENCIA [Suspect]
     Active Substance: ABATACEPT
     Dosage: CYCLIC
  4. ORENCIA [Suspect]
     Active Substance: ABATACEPT
  5. AZULFIDINE [Concomitant]
     Active Substance: SULFASALAZINE
  6. CELEBREX [Concomitant]
     Active Substance: CELECOXIB
  7. CITALOPRAM [Concomitant]
     Active Substance: CITALOPRAM\CITALOPRAM HYDROBROMIDE
  8. HYDROXYCHLOROQUINE [Concomitant]
     Active Substance: HYDROXYCHLOROQUINE
  9. HYDROXYCHLOROQUINE SULFATE [Concomitant]
     Active Substance: HYDROXYCHLOROQUINE SULFATE
  10. METHOTREXATE [Concomitant]
     Active Substance: METHOTREXATE
  11. PREGABALIN [Concomitant]
     Active Substance: PREGABALIN
  12. PROGESTERONE [Concomitant]
     Active Substance: PROGESTERONE
  13. SULFASALAZINE [Concomitant]
     Active Substance: SULFASALAZINE
  14. ZOPICLONE [Concomitant]
     Active Substance: ZOPICLONE

REACTIONS (5)
  - Off label use [Not Recovered/Not Resolved]
  - Therapeutic response decreased [Not Recovered/Not Resolved]
  - Gastric ulcer [Not Recovered/Not Resolved]
  - Gastritis [Not Recovered/Not Resolved]
  - Arthralgia [Not Recovered/Not Resolved]
